FAERS Safety Report 21532016 (Version 3)
Quarter: 2022Q4

REPORT INFORMATION
  Report Type: Report from Study
  Country: NL (occurrence: NL)
  Receive Date: 20221101
  Receipt Date: 20221108
  Transmission Date: 20230112
  Serious: Yes (Hospitalization)
  Sender: FDA-Public Use
  Company Number: NL-ABBVIE-4180492

PATIENT
  Age: 64 Year
  Sex: Female

DRUGS (5)
  1. CARBIDOPA\LEVODOPA [Suspect]
     Active Substance: CARBIDOPA\LEVODOPA
     Indication: Parkinson^s disease
     Dosage: END DATE 2022
     Route: 050
     Dates: start: 20220913
  2. CARBIDOPA\LEVODOPA [Suspect]
     Active Substance: CARBIDOPA\LEVODOPA
     Dosage: MD: 11.0 ML, CD: 3.7 ML/H, ED: 2.5 ML
     Route: 050
  3. CARBIDOPA\LEVODOPA [Suspect]
     Active Substance: CARBIDOPA\LEVODOPA
     Dosage: MD: 8.0 ML, CD: 3.7 ML/H, ED: 2.5 ML
     Route: 050
  4. CARBIDOPA\LEVODOPA [Suspect]
     Active Substance: CARBIDOPA\LEVODOPA
     Dosage: MD: 8.0 ML, CD: 2.8 ML/H, ED: 2.0 ML
     Route: 050
  5. CARBIDOPA\LEVODOPA [Suspect]
     Active Substance: CARBIDOPA\LEVODOPA
     Dosage: MD: 11.0 ML, CD: 3.7 ML/H, ED: 2.5 ML DOSE INCREASED
     Route: 050

REACTIONS (4)
  - Illness [Recovered/Resolved]
  - Nausea [Recovering/Resolving]
  - Dyskinesia [Not Recovered/Not Resolved]
  - Medical device site pain [Not Recovered/Not Resolved]

NARRATIVE: CASE EVENT DATE: 20220101
